FAERS Safety Report 9235747 (Version 2)
Quarter: 2013Q4

REPORT INFORMATION
  Report Type: Spontaneous
  Country: CA (occurrence: CA)
  Receive Date: 20130417
  Receipt Date: 20131114
  Transmission Date: 20140711
  Serious: Yes (Hospitalization, Disabling, Other)
  Sender: FDA-Public Use
  Company Number: CA-MILLENNIUM PHARMACEUTICALS, INC.-2013-02783

PATIENT
  Sex: 0

DRUGS (4)
  1. VELCADE [Suspect]
     Indication: PLASMA CELL MYELOMA
     Dosage: 1.3 MG/M2, UNK
     Route: 065
     Dates: start: 20121101, end: 201303
  2. MELPHALAN [Concomitant]
     Indication: PLASMA CELL MYELOMA
     Dosage: 12 MG, UNK
     Route: 048
     Dates: start: 20121101, end: 201303
  3. PREDNISONE [Concomitant]
     Indication: PLASMA CELL MYELOMA
     Dosage: 100 MG, UNK
     Route: 048
     Dates: start: 20121101, end: 201303
  4. AREDIA [Concomitant]
     Indication: PLASMA CELL MYELOMA
     Dosage: 90 MG, UNK
     Route: 042
     Dates: start: 20121108

REACTIONS (3)
  - Cardiac failure [Recovered/Resolved]
  - Fluid overload [Unknown]
  - Atrial fibrillation [Recovered/Resolved]
